FAERS Safety Report 5717737-4 (Version None)
Quarter: 2008Q2

REPORT INFORMATION
  Report Type: 
  Country: None (occurrence: None)
  Receive Date: 20080425
  Receipt Date: 20080415
  Transmission Date: 20081010
  Serious: Yes (Life-Threatening, Hospitalization, Other)
  Sender: FDA-Public Use
  Company Number: US-JNJFOC-20080306718

PATIENT
  Sex: Female
  Weight: 68.04 kg

DRUGS (9)
  1. REMICADE [Suspect]
     Indication: NEOPLASM MALIGNANT
     Route: 042
  2. REMICADE [Suspect]
     Indication: RHEUMATOID ARTHRITIS
     Route: 042
  3. DURAGESIC-100 [Suspect]
     Indication: PAIN
     Route: 061
  4. DURAGESIC-100 [Suspect]
     Indication: RHEUMATOID ARTHRITIS
     Route: 061
  5. METHOTREXATE [Suspect]
     Indication: DRUG USE FOR UNKNOWN INDICATION
     Route: 042
  6. VALIUM [Concomitant]
     Indication: PANIC ATTACK
     Route: 048
  7. RESTORIL [Concomitant]
     Indication: INSOMNIA
     Route: 048
  8. ZOLOFT [Concomitant]
     Indication: DEPRESSION
     Route: 048
  9. CYMBALTA [Concomitant]
     Indication: DEPRESSION
     Route: 048

REACTIONS (9)
  - BONE DENSITY DECREASED [None]
  - BREAST MASS [None]
  - HOSPITALISATION [None]
  - INCREASED UPPER AIRWAY SECRETION [None]
  - MALAISE [None]
  - NASOPHARYNGITIS [None]
  - NAUSEA [None]
  - RASH [None]
  - WRONG TECHNIQUE IN DRUG USAGE PROCESS [None]
